FAERS Safety Report 22004144 (Version 1)
Quarter: 2023Q1

REPORT INFORMATION
  Report Type: Spontaneous
  Country: US (occurrence: US)
  Receive Date: 20230217
  Receipt Date: 20230217
  Transmission Date: 20230417
  Serious: Yes (Other)
  Sender: FDA-Public Use
  Company Number: US-Accord-300446

PATIENT
  Age: 52 Year
  Sex: Female
  Weight: 91.63 kg

DRUGS (22)
  1. METOPROLOL [Suspect]
     Active Substance: METOPROLOL
     Indication: Product used for unknown indication
  2. FINERENONE [Suspect]
     Active Substance: FINERENONE
     Indication: Product used for unknown indication
  3. MIFEPRISTONE [Suspect]
     Active Substance: MIFEPRISTONE
     Indication: Cushing^s syndrome
     Route: 048
     Dates: start: 20221213, end: 20221226
  4. ALPRAZOLAM [Concomitant]
     Active Substance: ALPRAZOLAM
  5. BUPROPION [Concomitant]
     Active Substance: BUPROPION
  6. AZILSARTAN KAMEDOXOMIL [Concomitant]
     Active Substance: AZILSARTAN KAMEDOXOMIL
  7. AZILSARTAN MEDOXOMIL, CHLORTHALIDONE [Concomitant]
  8. VITAMIN B12 W/VITAMIN B6/FOLIC ACID [Concomitant]
  9. GABAPENTIN [Concomitant]
     Active Substance: GABAPENTIN
  10. INSULIN LISPRO [Concomitant]
     Active Substance: INSULIN LISPRO
  11. METRONIDAZOLE [Concomitant]
     Active Substance: METRONIDAZOLE
  12. NOVOLOG [Concomitant]
     Active Substance: INSULIN ASPART
  13. ACETAMINOPHEN\OXYCODONE HYDROCHLORIDE [Concomitant]
     Active Substance: ACETAMINOPHEN\OXYCODONE HYDROCHLORIDE
  14. SEMAGLUTIDE [Concomitant]
     Active Substance: SEMAGLUTIDE
  15. IRON [Concomitant]
     Active Substance: IRON
  16. RIZATRIPTAN [Concomitant]
     Active Substance: RIZATRIPTAN
  17. ROSUVASTATIN [Concomitant]
     Active Substance: ROSUVASTATIN
  18. TIZANIDINE [Concomitant]
     Active Substance: TIZANIDINE
  19. TOPIRAMATE [Concomitant]
     Active Substance: TOPIRAMATE
  20. ICOSAPENT ETHYL [Concomitant]
     Active Substance: ICOSAPENT ETHYL
  21. VITAMIN D NOS [Concomitant]
     Active Substance: VITAMIN D NOS
  22. MIFEPRISTONE [Suspect]
     Active Substance: MIFEPRISTONE
     Indication: Cushing^s syndrome
     Route: 048
     Dates: start: 20221227, end: 20230127

REACTIONS (24)
  - Blood glucose increased [Not Recovered/Not Resolved]
  - Blood creatine increased [Recovering/Resolving]
  - Glomerular filtration rate decreased [Recovering/Resolving]
  - Blood pressure decreased [Unknown]
  - Chest pain [Recovered/Resolved]
  - Weight increased [Not Recovered/Not Resolved]
  - Spinal pain [Not Recovered/Not Resolved]
  - Condition aggravated [Not Recovered/Not Resolved]
  - Joint swelling [Unknown]
  - Breast pain [Not Recovered/Not Resolved]
  - Influenza [Unknown]
  - Headache [Unknown]
  - Blood pressure increased [Unknown]
  - Pain in extremity [Unknown]
  - Swelling [Not Recovered/Not Resolved]
  - Arthralgia [Not Recovered/Not Resolved]
  - Nausea [Not Recovered/Not Resolved]
  - Vomiting [Unknown]
  - Oedema peripheral [Unknown]
  - Fatigue [Not Recovered/Not Resolved]
  - Dizziness [Unknown]
  - Constipation [Not Recovered/Not Resolved]
  - Malaise [Recovering/Resolving]
  - Dyspnoea [Unknown]

NARRATIVE: CASE EVENT DATE: 20220101
